FAERS Safety Report 21326466 (Version 7)
Quarter: 2023Q1

REPORT INFORMATION
  Report Type: Report from Study
  Country: JP (occurrence: None)
  Receive Date: 20220913
  Receipt Date: 20230223
  Transmission Date: 20230418
  Serious: Yes (Hospitalization)
  Sender: FDA-Public Use
  Company Number: JP-ROCHE-3176524

PATIENT
  Age: 73 Year
  Sex: Male
  Weight: 62 kg

DRUGS (22)
  1. TRASTUZUMAB [Suspect]
     Active Substance: TRASTUZUMAB
     Indication: Bile duct cancer
     Dosage: OVER 30 MINUTES ON DAY 1 OF EACH CYCLE
     Route: 042
  2. TRASTUZUMAB [Suspect]
     Active Substance: TRASTUZUMAB
     Dosage: PATIENT RECEIVED SUBSEQUENT DOSES AT 6 MG/KG; RECEIVED A TOTAL OF 6 DOSES AND COMPLETED C6D1.
     Route: 042
     Dates: start: 20220426, end: 20220426
  3. TRASTUZUMAB [Suspect]
     Active Substance: TRASTUZUMAB
     Route: 042
  4. TUCATINIB [Suspect]
     Active Substance: TUCATINIB
     Indication: Bile duct cancer
     Dosage: DAYS 1-21
     Route: 048
     Dates: start: 20220426, end: 20220523
  5. TUCATINIB [Suspect]
     Active Substance: TUCATINIB
     Dosage: DAYS 1-21;
     Route: 048
     Dates: start: 20220524, end: 20221024
  6. TUCATINIB [Suspect]
     Active Substance: TUCATINIB
     Route: 048
     Dates: start: 20221025, end: 20221110
  7. TUCATINIB [Suspect]
     Active Substance: TUCATINIB
     Route: 048
     Dates: start: 20221111, end: 20230125
  8. LOPERAMIDE [Suspect]
     Active Substance: LOPERAMIDE
     Indication: Diarrhoea
     Dosage: 1 MG, AS NEEDED
     Route: 065
     Dates: start: 20221112
  9. JANUVIA [Concomitant]
     Active Substance: SITAGLIPTIN PHOSPHATE
     Dates: start: 20211126
  10. JANUVIA [Concomitant]
     Active Substance: SITAGLIPTIN PHOSPHATE
     Dates: start: 20220928
  11. METGLUCO [Concomitant]
     Active Substance: METFORMIN HYDROCHLORIDE
     Dates: start: 20211126
  12. METGLUCO [Concomitant]
     Active Substance: METFORMIN HYDROCHLORIDE
     Dates: start: 20220915
  13. BARACLUDE [Concomitant]
     Active Substance: ENTECAVIR
     Dates: start: 20220329
  14. BISOPROLOL FUMARATE [Concomitant]
     Active Substance: BISOPROLOL FUMARATE
     Dates: start: 20220814
  15. REBAMIPIDE [Concomitant]
     Active Substance: REBAMIPIDE
     Dates: start: 20220809
  16. REBAMIPIDE [Concomitant]
     Active Substance: REBAMIPIDE
     Dates: start: 20220813
  17. ESOMEPRAZOLE [Concomitant]
     Active Substance: ESOMEPRAZOLE
     Dates: start: 20220809
  18. ESOMEPRAZOLE [Concomitant]
     Active Substance: ESOMEPRAZOLE
     Dates: start: 20220813
  19. SULFAMETHOXAZOLE\TRIMETHOPRIM [Concomitant]
     Active Substance: SULFAMETHOXAZOLE\TRIMETHOPRIM
     Dates: start: 20221227
  20. REPAGLINIDE [Concomitant]
     Active Substance: REPAGLINIDE
     Dates: start: 20220912
  21. LEVOFLOXACIN HEMIHYDRATE [Concomitant]
     Active Substance: LEVOFLOXACIN
     Dates: start: 20221227
  22. LOPERAMIDE [Concomitant]
     Active Substance: LOPERAMIDE
     Dates: start: 20221112

REACTIONS (2)
  - Interstitial lung disease [Recovering/Resolving]
  - COVID-19 [Recovering/Resolving]

NARRATIVE: CASE EVENT DATE: 20220905
